FAERS Safety Report 16166132 (Version 2)
Quarter: 2019Q2

REPORT INFORMATION
  Report Type: Report from Study
  Country: US (occurrence: US)
  Receive Date: 20190406
  Receipt Date: 20190417
  Transmission Date: 20190711
  Serious: Yes (Other)
  Sender: FDA-Public Use
  Company Number: US-ACCORD-118076

PATIENT
  Age: 13 Year
  Sex: Male
  Weight: 81.1 kg

DRUGS (7)
  1. IFOSFAMIDE. [Concomitant]
     Active Substance: IFOSFAMIDE
     Indication: EWING^S SARCOMA METASTATIC
     Dates: start: 201702
  2. ETOPOSIDE. [Suspect]
     Active Substance: ETOPOSIDE
     Indication: EWING^S SARCOMA METASTATIC
     Dosage: PARTIAL DOSE OF 2.9 MG, PRESCRIBED AS?100 MG/M2
     Route: 042
     Dates: start: 201702
  3. DOXORUBICIN [Concomitant]
     Active Substance: DOXORUBICIN
     Indication: EWING^S SARCOMA METASTATIC
     Dates: start: 201702
  4. DEXAMETHASONE. [Concomitant]
     Active Substance: DEXAMETHASONE
     Indication: PREMEDICATION
     Route: 042
     Dates: start: 201702
  5. MESNA. [Concomitant]
     Active Substance: MESNA
     Indication: EWING^S SARCOMA METASTATIC
     Dates: start: 201702
  6. VINCRISTINE [Concomitant]
     Active Substance: VINCRISTINE
     Indication: EWING^S SARCOMA METASTATIC
     Dates: start: 201702
  7. CYCLOPHOSPHAMIDE/CYCLOPHOSPHAMIDE MONOHYDRATE [Concomitant]
     Indication: EWING^S SARCOMA METASTATIC
     Dates: start: 201702

REACTIONS (6)
  - Cough [Recovering/Resolving]
  - Blood pressure decreased [Recovering/Resolving]
  - Vomiting [Recovering/Resolving]
  - Oxygen saturation decreased [Recovering/Resolving]
  - Face oedema [Recovering/Resolving]
  - Off label use [Unknown]

NARRATIVE: CASE EVENT DATE: 201702
